FAERS Safety Report 15438354 (Version 1)
Quarter: 2018Q4

REPORT INFORMATION
  Report Type: Spontaneous
  Country: DE (occurrence: DE)
  Receive Date: 20180928
  Receipt Date: 20180928
  Transmission Date: 20190204
  Serious: Yes (Hospitalization)
  Sender: FDA-Public Use
  Company Number: DE-AUROBINDO-AUR-APL-2018-043888

PATIENT
  Age: 73 Year
  Sex: Female

DRUGS (11)
  1. XYLOCITIN [Suspect]
     Active Substance: LIDOCAINE HYDROCHLORIDE
     Indication: LOCAL ANAESTHESIA
     Dosage: 1 UKN, ONCE/SINGLE; IN TOTAL
     Route: 058
     Dates: start: 20080930, end: 20080930
  2. DIGITOXIN [Suspect]
     Active Substance: DIGITOXIN
     Indication: ATRIAL FIBRILLATION
     Dosage: 0.07 MILLIGRAM, ONCE A DAY
     Route: 048
     Dates: start: 200801, end: 20080930
  3. DIOVAN [Concomitant]
     Active Substance: VALSARTAN
     Indication: HYPERTENSION
     Dosage: DAILY DOSE: 160 MG MILLIGRAM(S) EVERY DAY
     Route: 048
     Dates: start: 200801
  4. FALITHROM [Concomitant]
     Active Substance: PHENPROCOUMON
     Indication: ATRIAL FIBRILLATION
     Dosage: DAILY DOSE: 1.5 MG MILLIGRAM(S) EVERY DAY
     Route: 048
     Dates: start: 200801
  5. NOVONORM [Concomitant]
     Active Substance: REPAGLINIDE
     Dosage: DAILY DOSE: 2 MG MILLIGRAM(S) EVERY DAY
     Route: 048
     Dates: start: 200808
  6. FALITHROM [Concomitant]
     Active Substance: PHENPROCOUMON
     Dosage: 2 MILLIGRAM, ONCE A DAY
     Route: 065
     Dates: start: 200801
  7. NOVONORM [Concomitant]
     Active Substance: REPAGLINIDE
     Indication: TYPE 2 DIABETES MELLITUS
     Dosage: 2 MILLIGRAM, DAILY
     Route: 065
     Dates: start: 2008
  8. MOXONIDINE FILM-COATED TABLETS [Suspect]
     Active Substance: MOXONIDINE
     Indication: HYPERTENSION
     Dosage: 0.3 MILLIGRAM, DAILY
     Route: 048
     Dates: start: 200804, end: 20080930
  9. TRIAM /00031902/ [Suspect]
     Active Substance: TRIAMCINOLONE ACETONIDE
     Indication: ARTHRITIS
     Dosage: 40 MG, IN TOTAL,ONCE/SINGLE
     Route: 014
     Dates: start: 20080930, end: 20080930
  10. ALDACTONE [Concomitant]
     Active Substance: SPIRONOLACTONE
     Indication: OEDEMA
     Dosage: DAILY DOSE: 25 MG MILLIGRAM(S) EVERY DAY
     Route: 048
     Dates: start: 200801
  11. BISOPROLOL FILM-COATED TABLETS [Suspect]
     Active Substance: BISOPROLOL
     Indication: HYPERTENSION
     Dosage: 10 MILLIGRAM, DAILY
     Route: 048
     Dates: start: 2005, end: 20080930

REACTIONS (6)
  - Hyperhidrosis [Recovered/Resolved]
  - Nausea [Recovered/Resolved]
  - Drug interaction [Recovered/Resolved]
  - Sinus bradycardia [Recovered/Resolved]
  - Erythema [Recovered/Resolved]
  - Neck pain [Recovered/Resolved]

NARRATIVE: CASE EVENT DATE: 20080930
